FAERS Safety Report 20337829 (Version 4)
Quarter: 2023Q2

REPORT INFORMATION
  Report Type: Spontaneous
  Country: GB (occurrence: GB)
  Receive Date: 20220114
  Receipt Date: 20230623
  Transmission Date: 20230722
  Serious: Yes (Other)
  Sender: FDA-Public Use
  Company Number: GB-BAXTER-2020BAX017657

PATIENT
  Age: 51 Year
  Sex: Male
  Weight: 53 kg

DRUGS (202)
  1. SODIUM CHLORIDE [Suspect]
     Active Substance: SODIUM CHLORIDE
     Dosage: 0.9 %, DOAGE TEXT: 0.9 %
     Route: 065
     Dates: start: 20200825, end: 20200825
  2. SODIUM CHLORIDE [Suspect]
     Active Substance: SODIUM CHLORIDE
     Dosage: 0.9 %, DOAGE TEXT: 0.9 % (UNKNOWN)
     Route: 042
     Dates: start: 20200825, end: 20200825
  3. SODIUM CHLORIDE [Suspect]
     Active Substance: SODIUM CHLORIDE
     Dosage: UNKNOWN
     Route: 065
     Dates: start: 20200825, end: 20200825
  4. SODIUM CHLORIDE [Suspect]
     Active Substance: SODIUM CHLORIDE
     Dosage: UNK
     Route: 042
     Dates: start: 20200825, end: 20200825
  5. SODIUM CHLORIDE [Suspect]
     Active Substance: SODIUM CHLORIDE
     Dosage: UNKNOWN
     Route: 042
     Dates: start: 20200825
  6. SODIUM CHLORIDE [Suspect]
     Active Substance: SODIUM CHLORIDE
     Dosage: UNK
     Route: 065
  7. SODIUM CHLORIDE [Suspect]
     Active Substance: SODIUM CHLORIDE
     Dosage: UNK
     Route: 065
  8. SODIUM CHLORIDE [Suspect]
     Active Substance: SODIUM CHLORIDE
     Dosage: 3 DF ONCE A DAY
     Route: 065
  9. CALCIUM CARBONATE\CHOLECALCIFEROL [Suspect]
     Active Substance: CALCIUM CARBONATE\CHOLECALCIFEROL
     Indication: Mineral supplementation
     Dosage: TABLET 2UNK, TABLET(1D), PHARMACEUTICAL FORM: TABLET (245)
     Route: 065
  10. CALCIUM CARBONATE\CHOLECALCIFEROL [Suspect]
     Active Substance: CALCIUM CARBONATE\CHOLECALCIFEROL
     Dosage: 1 DF (TABLET(1D); PHARMACEUTICAL FORM: TABLET (245)
     Route: 065
  11. CALCIUM CARBONATE\CHOLECALCIFEROL [Suspect]
     Active Substance: CALCIUM CARBONATE\CHOLECALCIFEROL
     Dosage: 1 TABLET
     Route: 065
  12. CALCIUM CARBONATE\CHOLECALCIFEROL [Suspect]
     Active Substance: CALCIUM CARBONATE\CHOLECALCIFEROL
     Dosage: UNK, UNK, QD, QD1 DF, QD, PHARMACEUTICAL FORM: 245 (TABLET)
     Route: 065
  13. CALCIUM CARBONATE\CHOLECALCIFEROL [Suspect]
     Active Substance: CALCIUM CARBONATE\CHOLECALCIFEROL
     Dosage: TABLET 2 (2 DOSAGE FORMS), PHARMACEUTICAL FORM: TABLET (245)
     Route: 065
  14. CALCIUM CARBONATE\CHOLECALCIFEROL [Suspect]
     Active Substance: CALCIUM CARBONATE\CHOLECALCIFEROL
     Dosage: 1 DOSAGE FORM, QD (TABLET
     Route: 065
  15. CALCIUM CARBONATE\CHOLECALCIFEROL [Suspect]
     Active Substance: CALCIUM CARBONATE\CHOLECALCIFEROL
     Dosage: 2 DF, QD (TABLET 2 (2 DOSAGE FORMS))
     Route: 065
  16. CALCIUM CARBONATE\CHOLECALCIFEROL [Suspect]
     Active Substance: CALCIUM CARBONATE\CHOLECALCIFEROL
     Dosage: UNK, PHARMACEUTICAL FORM: TABLET (245)
     Route: 065
  17. CALCIUM CARBONATE\CHOLECALCIFEROL [Suspect]
     Active Substance: CALCIUM CARBONATE\CHOLECALCIFEROL
     Dosage: 1 DF (TABLET(1D); 1DF)
     Route: 065
  18. CALCIUM CARBONATE\CHOLECALCIFEROL [Suspect]
     Active Substance: CALCIUM CARBONATE\CHOLECALCIFEROL
     Dosage: 1 DF, QD
     Route: 065
  19. CALCIUM CARBONATE\CHOLECALCIFEROL [Suspect]
     Active Substance: CALCIUM CARBONATE\CHOLECALCIFEROL
     Dosage: UNK DF, QD
     Route: 065
  20. CALCIUM CARBONATE\CHOLECALCIFEROL [Suspect]
     Active Substance: CALCIUM CARBONATE\CHOLECALCIFEROL
     Dosage: 1 DF; QD TABLETS
     Route: 065
  21. CALCIUM CARBONATE\CHOLECALCIFEROL [Suspect]
     Active Substance: CALCIUM CARBONATE\CHOLECALCIFEROL
     Dosage: 2 DOSAGE FORM, QD (TABLET 2 UNK)
     Route: 065
  22. CALCIUM CARBONATE\CHOLECALCIFEROL [Suspect]
     Active Substance: CALCIUM CARBONATE\CHOLECALCIFEROL
     Dosage: 1 DF, QD
     Route: 048
  23. CALCIUM CARBONATE\CHOLECALCIFEROL [Suspect]
     Active Substance: CALCIUM CARBONATE\CHOLECALCIFEROL
     Dosage: 2 DF (DOSAGE FORM) ONCE DAILY, DOSAGE TEXT: TABLET 2 (2 DOSAGE FORMS) (2 DOSAGE FORMS,1 D) (2 DOSAGE
     Route: 065
  24. APREPITANT [Suspect]
     Active Substance: APREPITANT
     Indication: Supportive care
     Dosage: 125 MG (MILLIGRAM), DOSAGE TEXT  80 MILLIGRAM;
     Route: 065
     Dates: start: 20200825
  25. APREPITANT [Suspect]
     Active Substance: APREPITANT
     Indication: Mineral supplementation
     Dosage: 125 MG (MILLIGRAM), (DOSAGE TEXT: 125 MG, 1D )
     Route: 065
     Dates: start: 20200825
  26. APREPITANT [Suspect]
     Active Substance: APREPITANT
     Dosage: 1 UNK, QD
     Route: 065
  27. APREPITANT [Suspect]
     Active Substance: APREPITANT
     Dosage: D2 (80 MG), IN TOTAL
     Route: 065
     Dates: start: 20200826
  28. APREPITANT [Suspect]
     Active Substance: APREPITANT
     Dosage: D1 (125 MG)/125 MG, 1X; IN TOTAL/D1
     Route: 065
     Dates: start: 20200825
  29. APREPITANT [Suspect]
     Active Substance: APREPITANT
     Dosage: 80 MG, (D2) SINGLE (IN TOTAL)
     Route: 065
     Dates: start: 20200825
  30. APREPITANT [Suspect]
     Active Substance: APREPITANT
     Dosage: D1 (125 MG)
     Route: 065
     Dates: start: 20200826
  31. APREPITANT [Suspect]
     Active Substance: APREPITANT
     Dosage: D1 (125 MG)/125 MG, 1X; IN TOTAL/D1
     Route: 065
     Dates: start: 20200825
  32. APREPITANT [Suspect]
     Active Substance: APREPITANT
     Dosage: 125 MG, (D1 (125 MG)/125 MG, 1X; IN TOTAL/D1)
     Route: 065
     Dates: start: 20200825
  33. APREPITANT [Suspect]
     Active Substance: APREPITANT
     Dosage: D2 (80MG), IN TOTAL
     Route: 065
     Dates: start: 20200826
  34. APREPITANT [Suspect]
     Active Substance: APREPITANT
     Dosage: 125 MG (125 MG (D1) SINGLE (D1 (125 MG)/125 MG,1X IN TOTAL)
     Route: 065
     Dates: start: 20200826
  35. APREPITANT [Suspect]
     Active Substance: APREPITANT
     Dosage: 80 MILLIGRAM,PRN
     Route: 065
  36. APREPITANT [Suspect]
     Active Substance: APREPITANT
     Dosage: 125 MILLIGRAM,PRN
     Route: 065
  37. APREPITANT [Suspect]
     Active Substance: APREPITANT
     Dosage: 80 MG (DOSAGE TEXT: 80 UNK)
     Route: 065
  38. APREPITANT [Suspect]
     Active Substance: APREPITANT
     Dosage: 15 MILLIGRAM(DOSAGE TEXT: 80 MILLIGRAM)
     Route: 065
     Dates: start: 20200825
  39. CALCIUM [Suspect]
     Active Substance: CALCIUM
     Indication: Mineral supplementation
     Dosage: TABLET, PHARMACEUTICAL FORM: TABLET (245)
     Route: 065
  40. CALCIUM [Suspect]
     Active Substance: CALCIUM
     Indication: Mineral supplementation
     Dosage: TABLET. UNK, QD, (UNK UNK, QD), PHARMACEUTICAL FORM: TABLET (245)
     Route: 065
  41. CALCIUM [Suspect]
     Active Substance: CALCIUM
     Indication: Nutritional supplementation
     Dosage: TABLET. UNK, QD, (UNK UNK, QD), PHARMACEUTICAL FORM: TABLET (245)
     Route: 065
  42. CALCIUM [Suspect]
     Active Substance: CALCIUM
     Dosage: TABLET. UNK, QD, (UNK UNK, QD)PHARMACEUTICAL FORM: TABLET (245)
     Route: 065
  43. CALCIUM [Suspect]
     Active Substance: CALCIUM
     Dosage: 1 UNK, QD, PHARMACEUTICAL FORM: TABLET (245)
     Route: 065
  44. CALCIUM [Suspect]
     Active Substance: CALCIUM
     Dosage: 8 DF, QD, PHARMACEUTICAL FORM: TABLET (245)
     Route: 065
  45. CALCIUM [Suspect]
     Active Substance: CALCIUM
     Dosage: 1 DF, QD, PHARMACEUTICAL FORM: TABLET (245)
     Route: 065
  46. CALCIUM [Suspect]
     Active Substance: CALCIUM
     Dosage: 2 DF, QD, ((2 DF, QD (TABLET), TABLET 2UNK))  PHARMACEUTICAL FORM: TABLET (245)
     Route: 065
  47. CALCIUM [Suspect]
     Active Substance: CALCIUM
     Dosage: 1 DOSAGE FORM, ONCE A DAY
     Route: 065
  48. CALCIUM [Suspect]
     Active Substance: CALCIUM
     Dosage: 8 DF, QD, DOSAGE TEXT: TABLET
     Route: 065
  49. CALCIUM [Suspect]
     Active Substance: CALCIUM
     Dosage: 1 DF, QD, TABLET
     Route: 065
  50. CALCIUM [Suspect]
     Active Substance: CALCIUM
     Dosage: 1 UNK, QD
     Route: 065
  51. CALCIUM [Suspect]
     Active Substance: CALCIUM
     Dosage: 1 DF, QD
     Route: 065
  52. CALCIUM [Suspect]
     Active Substance: CALCIUM
     Dosage: 2 DF, QD, DOSAGE TEXT: 2 DF, QD, PHARMACEUTICAL DOSAGE FORM: TABLET
     Route: 065
  53. CALCIUM [Suspect]
     Active Substance: CALCIUM
     Dosage: UNK, QD, (UNK UNK, QD)
     Route: 065
  54. CALCIUM [Suspect]
     Active Substance: CALCIUM
     Dosage: UNK, QD, (UNK UNK, QD)
     Route: 065
  55. CALCIUM [Suspect]
     Active Substance: CALCIUM
     Dosage: PHARMACEUTICAL FORM: TABLET
     Route: 048
  56. CALCIUM [Suspect]
     Active Substance: CALCIUM
     Dosage: UNK, PHARMACEUTICAL FORM: TABLET
     Route: 048
  57. CALCIUM [Suspect]
     Active Substance: CALCIUM
     Dosage: 1 DOSAGE FORMS,QD
     Route: 065
  58. CALCIUM [Suspect]
     Active Substance: CALCIUM
     Dosage: 8 DOSAGE FORMS,PRN
     Route: 065
  59. CALCIUM [Suspect]
     Active Substance: CALCIUM
     Dosage: 1 DOSAGE FORMS,PRN
     Route: 065
  60. CALCIUM [Suspect]
     Active Substance: CALCIUM
     Dosage: 8 DF, 8 UNK
     Route: 048
  61. CALCIUM [Suspect]
     Active Substance: CALCIUM
     Dosage: (DOSAGE TEXT: 1 DF, QD(UNK, QD, (UNK UNK, QD )), PHARMACEUTICAL DOSAGE FROM:TABLET
     Route: 048
  62. CALCIUM [Suspect]
     Active Substance: CALCIUM
     Dosage: UNK; ;
     Route: 048
  63. CALCIUM\VITAMIN D [Suspect]
     Active Substance: CALCIUM\VITAMIN D
     Indication: Mineral supplementation
     Dosage: UNK UNK, QD, 8 DF, QD CHEWABLE TABLET
     Route: 065
  64. CALCIUM\VITAMIN D [Suspect]
     Active Substance: CALCIUM\VITAMIN D
     Dosage: UNK, QD (UNK UNK, QD), PHARMACEUTICAL FORM: 245 (TABLET)
     Route: 065
  65. CALCIUM\VITAMIN D [Suspect]
     Active Substance: CALCIUM\VITAMIN D
     Dosage: DOSE: 1 (UNSPECIFIED UNIT)
     Route: 065
  66. CALCIUM\VITAMIN D [Suspect]
     Active Substance: CALCIUM\VITAMIN D
     Dosage: 2 DF, QD
     Route: 065
  67. CALCIUM\VITAMIN D [Suspect]
     Active Substance: CALCIUM\VITAMIN D
     Dosage: 1 DF ONCE DAILY, DOSAGE TEXT:1 DF, QD
     Route: 065
  68. CALCIUM\VITAMIN D [Suspect]
     Active Substance: CALCIUM\VITAMIN D
     Dosage: 1 DF, DOSE: 1 (UNSPECIFIED UNIT), PHARMACEUTICAL FORM: TABLET
     Route: 065
  69. CALCIUM\VITAMIN D [Suspect]
     Active Substance: CALCIUM\VITAMIN D
     Dosage: PHARMACEUTICAL FORM: TABLET, 2 DF, QD
     Route: 065
  70. CALCIUM\VITAMIN D [Suspect]
     Active Substance: CALCIUM\VITAMIN D
     Dosage: 8 DF, QD,  PHARMACEUTICAL FORM: TABLET.
     Route: 065
  71. CALCIUM\VITAMIN D [Suspect]
     Active Substance: CALCIUM\VITAMIN D
     Dosage: 2 DOSAGE FORM 1 DAY, (DOSAGE TEXT: 2 UNK)
     Route: 065
  72. CISPLATIN [Suspect]
     Active Substance: CISPLATIN
     Indication: Germ cell neoplasm
     Dosage: 79 MG (MILLIGRAM), DOSAGE TEXT: 79 MG IN 1 LITER (NOT SPECIFIED) (79 MG);1 SEPARATE DOSAGE
     Route: 065
     Dates: start: 20200825
  73. CISPLATIN [Suspect]
     Active Substance: CISPLATIN
     Dosage: 79 MG (IN 1 LITER)
     Route: 065
  74. CHOLECALCIFEROL [Suspect]
     Active Substance: CHOLECALCIFEROL
     Indication: Mineral supplementation
     Dosage: TABLET(1D) / UNK, QD (TABLET(1D)), 1 DF, QD, PHARMACEUTICAL FORM: TABLET (245)
     Route: 065
  75. CHOLECALCIFEROL [Suspect]
     Active Substance: CHOLECALCIFEROL
     Indication: Mineral supplementation
     Dosage: 8 DF, QD.
     Route: 065
  76. CHOLECALCIFEROL [Suspect]
     Active Substance: CHOLECALCIFEROL
     Dosage: UNK, QD, (UNK UNK, QD), TABLET
     Route: 065
  77. CHOLECALCIFEROL [Suspect]
     Active Substance: CHOLECALCIFEROL
     Dosage: TABLET(1D) / UNK, QD (TABLET(1D)), PHARMACEUTICAL FORM: TABLET (245)
     Route: 065
  78. CHOLECALCIFEROL [Suspect]
     Active Substance: CHOLECALCIFEROL
     Dosage: 2 DOSAGE FORM, ONCE A DAY(2 DF, QD)
     Route: 065
  79. CHOLECALCIFEROL [Suspect]
     Active Substance: CHOLECALCIFEROL
     Dosage: 2 DF, QD, DOSAGE FORM: TABLET
     Route: 065
  80. CHOLECALCIFEROL [Suspect]
     Active Substance: CHOLECALCIFEROL
     Dosage: 8 DF, QD, DOSAGE FORM: TABLET
     Route: 065
  81. CHOLECALCIFEROL [Suspect]
     Active Substance: CHOLECALCIFEROL
     Dosage: 8 DF, QD, DOSAGE FORM: TABLET
     Route: 065
  82. CHOLECALCIFEROL [Suspect]
     Active Substance: CHOLECALCIFEROL
     Dosage: 8 DF, QD, DOSAGE FORM: TABLET
     Route: 065
  83. CHOLECALCIFEROL [Suspect]
     Active Substance: CHOLECALCIFEROL
     Dosage: 1 DF, QD, (QD(UNK, QD, (UNK UNK, QD) ), DOSAGE FORM: TABLET
     Route: 065
  84. CHOLECALCIFEROL [Suspect]
     Active Substance: CHOLECALCIFEROL
     Dosage: DOSE: 1 (UNSPECIFIED UNIT); TABLET
     Route: 065
  85. CHOLECALCIFEROL [Suspect]
     Active Substance: CHOLECALCIFEROL
     Dosage: UNK UNK, QD(TABLET(1D) / UNK, QD (TABLET(1D)) )
     Route: 065
  86. CHOLECALCIFEROL [Suspect]
     Active Substance: CHOLECALCIFEROL
     Dosage: 1 DF OCEN DAILY, DOSAGE TEXT: 1 DF
     Route: 065
  87. CHOLECALCIFEROL [Suspect]
     Active Substance: CHOLECALCIFEROL
     Dosage: UNK, QD, (UNK UNK, QD)
     Route: 065
  88. CHOLECALCIFEROL [Suspect]
     Active Substance: CHOLECALCIFEROL
     Dosage: 1 DF, QD
     Route: 065
  89. CHOLECALCIFEROL [Suspect]
     Active Substance: CHOLECALCIFEROL
     Dosage: 8 DOSAGE FORMS,PRN
     Route: 065
  90. CHOLECALCIFEROL [Suspect]
     Active Substance: CHOLECALCIFEROL
     Dosage: 2 DOSAGE FORMS,PRN
     Route: 065
  91. CHOLECALCIFEROL [Suspect]
     Active Substance: CHOLECALCIFEROL
     Dosage: 1 DOSAGE FORMS,PRN
     Route: 065
  92. DEXAMETHASONE [Suspect]
     Active Substance: DEXAMETHASONE
     Indication: Supportive care
     Dosage: 8MG, QD, PHARMACEUTICAL FORM: ORAL SOLUTION
     Route: 048
     Dates: start: 20200825
  93. DEXAMETHASONE [Suspect]
     Active Substance: DEXAMETHASONE
     Dosage: 8MG, QD, PHARMACEUTICAL FORM: TABLET
     Route: 048
     Dates: start: 20200825
  94. DEXAMETHASONE [Suspect]
     Active Substance: DEXAMETHASONE
     Dosage: 30 MG ONCE DAILY
     Route: 048
     Dates: start: 20200825
  95. DEXAMETHASONE [Suspect]
     Active Substance: DEXAMETHASONE
     Dosage: 8 MILLIGRAM,PRN
     Route: 048
     Dates: start: 20200825
  96. DEXAMETHASONE [Suspect]
     Active Substance: DEXAMETHASONE
     Dosage: 8 MG OMCE DAILY, DOSAGE TEXT: 8 MG, QD(8 MG, 1X/DAY ), DOSAGE FORM: ORAL SOLUTION
     Route: 065
     Dates: start: 20200825
  97. DOMPERIDONE [Suspect]
     Active Substance: DOMPERIDONE
     Indication: Supportive care
     Dosage: 8 MILLIGRAM ONCE DAILY, DOSAGE TEXT: 8 MG, QD(8 MILLIGRAM, QD )
     Route: 048
     Dates: start: 20200825
  98. DOMPERIDONE [Suspect]
     Active Substance: DOMPERIDONE
     Dosage: 30 MG ONCE DAILY, DOSAGE TEXT: 30 MG, QD, 30 MG, QD (PRN (30 MG,1 D)
     Route: 048
     Dates: start: 20200825
  99. DOMPERIDONE [Suspect]
     Active Substance: DOMPERIDONE
     Dosage: UNK
     Route: 065
  100. DOMPERIDONE [Suspect]
     Active Substance: DOMPERIDONE
     Dosage: 30 MILLIGRAM,PRN
     Route: 048
     Dates: start: 20200825
  101. DOMPERIDONE [Suspect]
     Active Substance: DOMPERIDONE
     Dosage: 8 MILLIGRAM,PRN
     Route: 048
     Dates: start: 20200825
  102. ETOPOSIDE [Suspect]
     Active Substance: ETOPOSIDE
     Indication: Germ cell neoplasm
     Dosage: 360 MILLIGRAM,PRN
     Route: 065
     Dates: start: 202007
  103. ETOPOSIDE [Suspect]
     Active Substance: ETOPOSIDE
     Dosage: 360 MG (MILLIGRAM), DOAGE TEXT: 360 MILLIGRAM, QD (IN 1 LITER 2 BAGS (360 MG))
     Route: 065
     Dates: start: 20200825, end: 20200825
  104. ETOPOSIDE [Suspect]
     Active Substance: ETOPOSIDE
     Dosage: 360 MG (MILLIGRAM), DOAGE TEXT: 360 MILLIGRAM, QD (IN 1 LITER 2 BAGS (360 MG))
     Route: 065
     Dates: start: 20200825, end: 20200825
  105. ETOPOSIDE [Suspect]
     Active Substance: ETOPOSIDE
     Dosage: 360 MG (MILLIGRAM), DOAGE TEXT: 360 MILLIGRAM, QD (IN 1 LITER 2 BAGS (360 MG))
     Route: 065
     Dates: start: 20200825, end: 20200825
  106. NAUZELIN [Suspect]
     Active Substance: DOMPERIDONE
     Indication: Supportive care
     Dosage: 30 MG, QD (AS NECESSARY) PRN, PHARMACEUTICAL FORM: TABLET (245)
     Route: 048
     Dates: start: 20200825
  107. NAUZELIN [Suspect]
     Active Substance: DOMPERIDONE
     Dosage: 30 MG, 1D (QD) (AS NECESSARY)
     Route: 048
     Dates: start: 20200825
  108. NAUZELIN [Suspect]
     Active Substance: DOMPERIDONE
     Dosage: 30 MILLIGRAM, QD (30 MG, QD (PRN (30 MG,1 D))
     Route: 048
     Dates: start: 20200825
  109. NAUZELIN [Suspect]
     Active Substance: DOMPERIDONE
     Dosage: UNKNOWN
     Route: 065
  110. NAUZELIN [Suspect]
     Active Substance: DOMPERIDONE
     Dosage: 8 MG, QD(8 MILLIGRAM, QD )
     Route: 048
     Dates: start: 20200825
  111. NAUZELIN [Suspect]
     Active Substance: DOMPERIDONE
     Dosage: 8 MILLIGRAM, QD
     Route: 048
     Dates: start: 20200825
  112. NAUZELIN [Suspect]
     Active Substance: DOMPERIDONE
     Dosage: 8  MILLIGRAM, DOSAGE FORM: 8 DOSAGE FORM
     Route: 065
     Dates: start: 20200525
  113. NICOTINE [Suspect]
     Active Substance: NICOTINE
     Indication: Drug therapy
     Dosage: 21 MG ONCE DAILY, DOSAGE TEXT: 21 MG, QD, PATCH, EVERY 24 HOURS (21 MG,1 D)
     Route: 065
  114. NICOTINE [Suspect]
     Active Substance: NICOTINE
     Dosage: 21 MG, QD, PATCH, EVERY 24 HOURS (21 MG,1 D)
     Route: 065
  115. NICOTINE [Suspect]
     Active Substance: NICOTINE
     Dosage: 21 MILLIGRAM,PRN
     Route: 065
  116. NICOTINE [Suspect]
     Active Substance: NICOTINE
     Dosage: 21 MG , DOSAGE TEXT: 21 MG;
     Route: 065
  117. ONDANSETRON [Suspect]
     Active Substance: ONDANSETRON
     Indication: Supportive care
     Dosage: 16 MILLIGRAM ONCE DAILY, DOAGE TEXT: 16 MILLIGRAM, QD (FOR 3 DAYS (16 MG,1 D)), (ORODISPERSIBLE FILM
     Route: 048
     Dates: start: 20200825, end: 20200825
  118. ONDANSETRON [Suspect]
     Active Substance: ONDANSETRON
     Dosage: 16 MILLIGRAM,PRN
     Route: 048
     Dates: start: 20200825
  119. PHENYLBUTAZONE [Suspect]
     Active Substance: PHENYLBUTAZONE
     Indication: Hypovitaminosis
     Dosage: UNK MG, QD
     Route: 065
  120. PHENYLBUTAZONE [Suspect]
     Active Substance: PHENYLBUTAZONE
     Indication: Hypovitaminosis
     Dosage: 300 MILLIGRAM ONCE DAILY, DOSAGE TEXT: 300 MG QD
     Route: 065
  121. PHENYLBUTAZONE [Suspect]
     Active Substance: PHENYLBUTAZONE
     Dosage: UNK
     Route: 065
  122. PHENYLBUTAZONE [Suspect]
     Active Substance: PHENYLBUTAZONE
     Dosage: UNK MG, QD
     Route: 065
  123. PHENYLBUTAZONE [Suspect]
     Active Substance: PHENYLBUTAZONE
     Dosage: 300 MILLIGRAM,PRN
     Route: 065
  124. PROPYPHENAZONE [Suspect]
     Active Substance: PROPYPHENAZONE
     Indication: Hypovitaminosis
     Dosage: UNK MG, QD
     Route: 065
  125. PROPYPHENAZONE [Suspect]
     Active Substance: PROPYPHENAZONE
     Dosage: 300 MILLIGRAM, QD
     Route: 065
  126. PROPYPHENAZONE [Suspect]
     Active Substance: PROPYPHENAZONE
     Dosage: UNK MG, QD
     Route: 065
  127. THIAMINE [Suspect]
     Active Substance: THIAMINE
     Indication: Hypovitaminosis
     Dosage: UNKUNK
     Route: 065
  128. THIAMINE [Suspect]
     Active Substance: THIAMINE
     Dosage: 300 MG, QD
     Route: 065
  129. THIAMINE [Suspect]
     Active Substance: THIAMINE
     Dosage: 1 DF, QD, UNK, UNK, QD
     Route: 065
  130. THIAMINE [Suspect]
     Active Substance: THIAMINE
     Dosage: 300 MILLIGRAM ONCE DAILY, DOSAGE TEXT: UNK UNK, QD;
     Route: 065
  131. THIAMINE MONONITRATE [Suspect]
     Active Substance: THIAMINE MONONITRATE
     Indication: Hypovitaminosis
     Dosage: 300MG ONCE DAILY, DOSAGE TEXT: 300 MG, QD
     Route: 065
  132. THIAMINE MONONITRATE [Suspect]
     Active Substance: THIAMINE MONONITRATE
     Indication: Hypovitaminosis
     Dosage: 300 MILLIGRAM, QD/300 MG,1 D
     Route: 065
  133. THIAMINE MONONITRATE [Suspect]
     Active Substance: THIAMINE MONONITRATE
     Dosage: 300 MG, QD
     Route: 065
  134. ENSURE [Suspect]
     Active Substance: AMINO ACIDS\DEXTROSE\ELECTROLYTES NOS\SOYBEAN OIL\VITAMINS
     Indication: Nutritional supplementation
     Dosage: TABLETS 3UNK, TABLETS (1 D)
     Route: 065
  135. ENSURE [Suspect]
     Active Substance: AMINO ACIDS\DEXTROSE\ELECTROLYTES NOS\SOYBEAN OIL\VITAMINS
     Dosage: TABLETS1 DF
     Route: 065
  136. MOVICOL [Suspect]
     Active Substance: POLYETHYLENE GLYCOL 3350\POTASSIUM CHLORIDE\SODIUM BICARBONATE\SODIUM CHLORIDE
     Indication: Product used for unknown indication
     Dosage: UNK
     Route: 065
  137. CALCIUM CARBONATE [Suspect]
     Active Substance: CALCIUM CARBONATE
     Indication: Mineral supplementation
     Dosage: 8 DF, QD
     Route: 065
  138. CALCIUM CARBONATE [Suspect]
     Active Substance: CALCIUM CARBONATE
     Indication: Mineral supplementation
     Dosage: 1 DF, (DOSAGE TEXT: 1 UNK)
     Route: 065
  139. CALCIUM CARBONATE [Suspect]
     Active Substance: CALCIUM CARBONATE
     Dosage: 1 UNK;
     Route: 065
  140. THIAMINE HYDROCHLORIDE [Suspect]
     Active Substance: THIAMINE HYDROCHLORIDE
     Indication: Nutritional supplementation
     Dosage: 1 DF, DOSAGE FORM: TABLET
     Route: 065
  141. THIAMINE HYDROCHLORIDE [Suspect]
     Active Substance: THIAMINE HYDROCHLORIDE
     Dosage: DOSAGE FORM: TABLET. 300MG,QD
     Route: 065
  142. TRIBASIC CALCIUM PHOSPHATE [Suspect]
     Active Substance: TRIBASIC CALCIUM PHOSPHATE
     Indication: Mineral supplementation
     Dosage: UNK
     Route: 065
  143. ASCORBIC ACID [Suspect]
     Active Substance: ASCORBIC ACID
     Indication: Product used for unknown indication
     Dosage: 1 DOSAGE FORM, ONCE A DAY
     Route: 065
  144. ASCORBIC ACID [Suspect]
     Active Substance: ASCORBIC ACID
     Dosage: 1 {DF}, QD
     Route: 065
  145. BIOTIN [Suspect]
     Active Substance: BIOTIN
     Indication: Product used for unknown indication
     Dosage: 3 DOSAGE FORM, TABLETS 3UNK
     Route: 065
  146. BIOTIN [Suspect]
     Active Substance: BIOTIN
     Dosage: 3 {DF}
     Route: 065
  147. FOLIC ACID [Suspect]
     Active Substance: FOLIC ACID
     Indication: Product used for unknown indication
     Dosage: 1 DOSAGE FORM, ONCE A DAY
     Route: 065
  148. FOLIC ACID [Suspect]
     Active Substance: FOLIC ACID
     Dosage: UNK
     Route: 065
  149. RIBOFLAVIN [Suspect]
     Active Substance: RIBOFLAVIN
     Indication: Product used for unknown indication
     Dosage: 1 DOSAGE FORM, ONCE A DAY
     Route: 065
  150. MAGNESIUM CHLORIDE [Suspect]
     Active Substance: MAGNESIUM CHLORIDE
     Indication: Product used for unknown indication
     Dosage: 1 DOSAGE FORM, ONCE A DAY
     Route: 065
  151. SODIUM POLYMETAPHOSPHATE [Suspect]
     Active Substance: SODIUM POLYMETAPHOSPHATE
     Indication: Product used for unknown indication
     Dosage: 3 DOSAGE FORM, TABLETS 3UNK
     Route: 065
  152. SODIUM POLYMETAPHOSPHATE [Suspect]
     Active Substance: SODIUM POLYMETAPHOSPHATE
     Dosage: UNK
     Route: 065
  153. POTASSIUM IODIDE [Suspect]
     Active Substance: POTASSIUM IODIDE
     Indication: Product used for unknown indication
     Dosage: 1 DOSAGE FORM, ONCE A DAY
     Route: 065
  154. POTASSIUM CHLORIDE [Suspect]
     Active Substance: POTASSIUM CHLORIDE
     Indication: Product used for unknown indication
     Dosage: 1 DOSAGE FORM, ONCE A DAY
     Route: 065
  155. CUPRIC SULFATE ANHYDROUS [Suspect]
     Active Substance: CUPRIC SULFATE ANHYDROUS
     Indication: Product used for unknown indication
     Dosage: 1 DOSAGE FORM, ONCE A DAY
     Route: 065
  156. CUPRIC SULFATE ANHYDROUS [Suspect]
     Active Substance: CUPRIC SULFATE ANHYDROUS
     Dosage: 1 DF ONCE DAILY, DOSAGE TEXT: 1 DF, QD
     Route: 065
  157. CYANOCOBALAMIN [Suspect]
     Active Substance: CYANOCOBALAMIN
     Indication: Product used for unknown indication
     Dosage: 1 DOSAGE FORM, ONCE A DAY, DOSAGE TEXT: 1 DF. QD
     Route: 065
  158. PYRIDOXINE HYDROCHLORIDE [Suspect]
     Active Substance: PYRIDOXINE HYDROCHLORIDE
     Indication: Product used for unknown indication
     Dosage: 1 DOSAGE FORM, ONCE A DAY
     Route: 065
  159. LINOLEIC ACID [Suspect]
     Active Substance: LINOLEIC ACID
     Indication: Product used for unknown indication
     Dosage: 3 DOSAGE FORM, TABLETS 3UNK
     Route: 065
  160. MANGANESE CHLORIDE [Suspect]
     Active Substance: MANGANESE CHLORIDE
     Indication: Product used for unknown indication
     Dosage: 1 DOSAGE FORM, ONCE A DAY
     Route: 065
  161. FERROUS SULFATE [Suspect]
     Active Substance: FERROUS SULFATE
     Indication: Product used for unknown indication
     Dosage: 1 DOSAGE FORM, ONCE A DAY
     Route: 065
  162. POTASSIUM CITRATE [Suspect]
     Active Substance: POTASSIUM CITRATE
     Indication: Product used for unknown indication
     Dosage: 1 DOSAGE FORM, ONCE A DAY
     Route: 065
  163. .ALPHA.-TOCOPHEROL ACETATE [Suspect]
     Active Substance: .ALPHA.-TOCOPHEROL ACETATE
     Indication: Product used for unknown indication
     Dosage: 1 DOSAGE FORM, ONCE A DAY
     Route: 065
  164. PHYTONADIONE [Suspect]
     Active Substance: PHYTONADIONE
     Indication: Product used for unknown indication
     Dosage: 1 DOSAGE FORM, ONCE A DAY
     Route: 065
  165. PHYTONADIONE [Suspect]
     Active Substance: PHYTONADIONE
     Dosage: UNK
     Route: 065
  166. SOYBEAN OIL [Suspect]
     Active Substance: SOYBEAN OIL
     Indication: Product used for unknown indication
     Dosage: 1 DOSAGE FORM, ONCE A DAY
     Route: 065
  167. CALCIUM PANTOTHENATE [Suspect]
     Active Substance: CALCIUM PANTOTHENATE
     Indication: Product used for unknown indication
     Dosage: 1 DOSAGE FORM, ONCE A DAY
     Route: 065
  168. ZINC SULFATE [Suspect]
     Active Substance: ZINC SULFATE
     Indication: Product used for unknown indication
     Dosage: 1 DOSAGE FORM, ONCE A DAY
     Route: 065
  169. VITAMIN A PALMITATE [Suspect]
     Active Substance: VITAMIN A PALMITATE
     Indication: Product used for unknown indication
     Dosage: 1 DOSAGE FORM, ONCE A DAY
     Route: 065
  170. ERGOCALCIFEROL [Suspect]
     Active Substance: ERGOCALCIFEROL
     Indication: Product used for unknown indication
     Dosage: 1 DOSAGE FORM, ONCE A DAY
     Route: 065
  171. ERGOCALCIFEROL [Suspect]
     Active Substance: ERGOCALCIFEROL
     Dosage: UNK
     Route: 065
  172. PROTEIN [Suspect]
     Active Substance: PROTEIN
     Indication: Product used for unknown indication
     Dosage: 1 DOSAGE FORM, ONCE A DAY
     Route: 065
  173. NICOTINAMIDE [Suspect]
     Active Substance: NIACINAMIDE
     Indication: Product used for unknown indication
     Dosage: 1 DOSAGE FORM, ONCE A DAY
     Route: 065
  174. THIAMINE MONONITRATE [Suspect]
     Active Substance: THIAMINE MONONITRATE
     Indication: Hypovitaminosis
     Dosage: 300 MILLIGRAM, ONCE A DAY, DOSAGE TEXT: 300 MILLIGRAM, QD
     Route: 065
  175. THIAMINE MONONITRATE [Suspect]
     Active Substance: THIAMINE MONONITRATE
     Indication: Hypovitaminosis
     Dosage: 300 MILLIGRAM, QD
     Route: 065
  176. ARCOXIA [Suspect]
     Active Substance: ETORICOXIB
     Indication: Product used for unknown indication
     Dosage: UNK
     Route: 065
  177. ARCOXIA [Suspect]
     Active Substance: ETORICOXIB
     Dosage: UNK
     Route: 065
  178. CALCIUM CARBONATE\CHOLECALCIFEROL [Suspect]
     Active Substance: CALCIUM CARBONATE\CHOLECALCIFEROL
     Indication: Product used for unknown indication
     Dosage: 2 DOSAGE FORMS,PRN
     Route: 065
  179. CALCIUM CARBONATE\CHOLECALCIFEROL [Suspect]
     Active Substance: CALCIUM CARBONATE\CHOLECALCIFEROL
     Dosage: 1 DOSAGE FORMS,PRN
     Route: 065
  180. CALCIUM CARBONATE\CHOLECALCIFEROL [Suspect]
     Active Substance: CALCIUM CARBONATE\CHOLECALCIFEROL
     Dosage: 1 DOSAGE FORM, QD;
     Route: 065
  181. CALCIUM CARBONATE\CHOLECALCIFEROL [Suspect]
     Active Substance: CALCIUM CARBONATE\CHOLECALCIFEROL
     Dosage: 2 DOSAGE FORM, DOSAGE TEXT: 2 DF, PHARMACEUTICAL DOSAGE FORM: 245
     Route: 065
  182. CALCIUM PHOSPHATE [Suspect]
     Active Substance: CALCIUM PHOSPHATE
     Indication: Mineral supplementation
     Dosage: 8 DOSAGE FORMS,PRN (DOSAGE TEXT:8 DF)
     Route: 065
  183. CALCIUM PHOSPHATE [Suspect]
     Active Substance: CALCIUM PHOSPHATE
     Dosage: DOSE NOT REPORTED, ONCE A DAY (DOSAGE TEXT: UNK)
     Route: 065
  184. COCODAMOL [Suspect]
     Active Substance: ACETAMINOPHEN\CODEINE PHOSPHATE
     Indication: Product used for unknown indication
     Dosage: (DOSAGE TEXT CODEINE PHOSPHATE WITH PARACETAMOL)
     Route: 065
  185. CALCIUM CARBONATE\CHOLECALCIFEROL [Suspect]
     Active Substance: CALCIUM CARBONATE\CHOLECALCIFEROL
     Indication: Mineral supplementation
     Dosage: 1 DOSAGE FORM, DOSAGE TEXT: 1 DF
     Route: 065
  186. CALCIUM CARBONATE\CHOLECALCIFEROL [Suspect]
     Active Substance: CALCIUM CARBONATE\CHOLECALCIFEROL
     Dosage: 2 DOSAGE FORM, DOSAGE TEXT: 2DF
     Route: 065
  187. CALCIUM CARBONATE\CHOLECALCIFEROL [Suspect]
     Active Substance: CALCIUM CARBONATE\CHOLECALCIFEROL
     Dosage: 8 DOSAGE FORM ONCE DAILY, DOSAGE TEXT: 8 DF
     Route: 065
  188. CALCIUM CARBONATE\CHOLECALCIFEROL [Suspect]
     Active Substance: CALCIUM CARBONATE\CHOLECALCIFEROL
     Dosage: 8 DOSAGE FORM, DOSAGE TEXT: 8 DF
     Route: 065
  189. ACETAMINOPHEN [Suspect]
     Active Substance: ACETAMINOPHEN
     Dosage: UNK
     Route: 065
  190. ZINC SULFATE [Suspect]
     Active Substance: ZINC SULFATE
     Dosage: UNK
     Route: 065
  191. FERROUS SULFATE [Suspect]
     Active Substance: FERROUS SULFATE
     Dosage: 1 DF
     Route: 065
  192. ETORICOXIB [Suspect]
     Active Substance: ETORICOXIB
     Indication: Product used for unknown indication
     Dosage: DOSAGE TEXT: UNK; ;
     Route: 065
  193. CODEINE PHOSPHATE [Suspect]
     Active Substance: CODEINE PHOSPHATE
     Route: 065
  194. DOMPERIDONE MALEATE [Suspect]
     Active Substance: DOMPERIDONE MALEATE
     Indication: Supportive care
     Dosage: 8 MG, ONCE DAILY (DOSAGE TEXT: 8 MILLIGRAM, QD)
     Route: 048
     Dates: start: 20200825
  195. DOMPERIDONE MALEATE [Suspect]
     Active Substance: DOMPERIDONE MALEATE
     Indication: Product used for unknown indication
     Dosage: 30 MG ONCE DAILY (DOSAGE TEXT: 30 MG, QD)
     Route: 065
     Dates: start: 20200825
  196. DOMPERIDONE MALEATE [Suspect]
     Active Substance: DOMPERIDONE MALEATE
     Dosage: 30 MG ONCE DAILY (DOSAGE TEXT: 30 MG, 1D (QD) (AS NECESSARY))
     Route: 048
     Dates: start: 20200825
  197. DOMPERIDONE MALEATE [Suspect]
     Active Substance: DOMPERIDONE MALEATE
     Dosage: 30 MG ONCE DAILY (DOSAGE TEXT: 30 MILLIGRAM, QD (30 MG, QD (PRN (30 MG,1 D)))
     Route: 048
     Dates: start: 20200825
  198. DOMPERIDONE MALEATE [Suspect]
     Active Substance: DOMPERIDONE MALEATE
     Dosage: UNK
     Route: 065
  199. CHOLECALCIFEROL [Suspect]
     Active Substance: CHOLECALCIFEROL
     Indication: Mineral supplementation
     Dosage: 1 DF ONCE DAILY, DOSAGE TEXT: 1 DF, QD, (QD(UNK, QD, (UNK UNK, QD) )
     Route: 065
  200. CHOLECALCIFEROL [Suspect]
     Active Substance: CHOLECALCIFEROL
     Indication: Mineral supplementation
     Dosage: AT UNSEPCIFIED DOSE ONCE DAILY, DOSAGE TEXT: UNK UNK, QD;
     Route: 065
  201. CHOLECALCIFEROL [Suspect]
     Active Substance: CHOLECALCIFEROL
     Dosage: 8 DF ONCE DAILY, DOSAGE TEXT: 8 DF, QD
     Route: 065
  202. UNSPECIFIED INGREDIENT [Suspect]
     Active Substance: UNSPECIFIED INGREDIENT
     Dosage: DOSAGE TEXT: UNK UNK, QD; ;
     Route: 065

REACTIONS (9)
  - Barrett^s oesophagus [Unknown]
  - Abdominal distension [Unknown]
  - Vitamin B12 deficiency [Unknown]
  - Regurgitation [Unknown]
  - Dyspepsia [Unknown]
  - Neck pain [Unknown]
  - Oropharyngeal discomfort [Unknown]
  - Eructation [Unknown]
  - Hypersensitivity [Recovered/Resolved]

NARRATIVE: CASE EVENT DATE: 20200825
